FAERS Safety Report 11833166 (Version 1)
Quarter: 2015Q4

REPORT INFORMATION
  Report Type: Spontaneous
  Country: US (occurrence: US)
  Receive Date: 20151214
  Receipt Date: 20151214
  Transmission Date: 20160305
  Serious: Yes (Other)
  Sender: FDA-Public Use
  Company Number: CHPA2015US014683

PATIENT
  Age: 4 Year
  Sex: Male

DRUGS (2)
  1. TRIAMINIC DAY TIME COLD + COUGH [Suspect]
     Active Substance: DEXTROMETHORPHAN HYDROBROMIDE\PHENYLEPHRINE
     Indication: NASOPHARYNGITIS
     Dosage: 1 TSP, UNK
     Route: 048
     Dates: start: 2015, end: 20151206
  2. TRIAMINIC DAY TIME COLD + COUGH [Suspect]
     Active Substance: DEXTROMETHORPHAN HYDROBROMIDE\PHENYLEPHRINE
     Indication: COUGH

REACTIONS (2)
  - Dyspnoea [Recovered/Resolved]
  - Seizure [Recovered/Resolved]
